FAERS Safety Report 4840800-7 (Version None)
Quarter: 2005Q4

REPORT INFORMATION
  Report Type: 
  Country: None (occurrence: None)
  Receive Date: 20051130
  Receipt Date: 20041221
  Transmission Date: 20060501
  Serious: No
  Sender: FDA-Public Use
  Company Number: US-BRISTOL-MYERS SQUIBB COMPANY-12803037

PATIENT
  Age: 78 Year
  Sex: Female
  Weight: 73 kg

DRUGS (3)
  1. AVALIDE [Suspect]
     Indication: HYPERTENSION
     Route: 048
     Dates: start: 20041001
  2. TENORMIN [Concomitant]
  3. OCUVITE [Concomitant]
     Indication: MACULAR DEGENERATION

REACTIONS (2)
  - HYPERTENSION [None]
  - SOMNOLENCE [None]
